FAERS Safety Report 10412527 (Version 1)
Quarter: 2014Q3

REPORT INFORMATION
  Report Type: Spontaneous
  Country: US (occurrence: None)
  Receive Date: 20140822
  Receipt Date: 20140822
  Transmission Date: 20150326
  Serious: Yes (Death, Other)
  Sender: FDA-Public Use
  Company Number: 2014US01110

PATIENT
  Sex: Female

DRUGS (1)
  1. ZIDOVUDINE. [Suspect]
     Active Substance: ZIDOVUDINE
     Indication: TRANSMISSION OF AN INFECTIOUS AGENT VIA PRODUCT

REACTIONS (3)
  - Exposure during pregnancy [None]
  - Arrested labour [None]
  - Caesarean section [None]
